FAERS Safety Report 6326672-2 (Version None)
Quarter: 2009Q3

REPORT INFORMATION
  Report Type: 
  Country: None (occurrence: None)
  Receive Date: 20090825
  Receipt Date: 20090812
  Transmission Date: 20100115
  Serious: Yes (Other)
  Sender: FDA-Public Use
  Company Number: US-PFIZER INC-2008158368

PATIENT
  Sex: Male
  Weight: 69 kg

DRUGS (2)
  1. CHANTIX [Suspect]
     Indication: SMOKING CESSATION THERAPY
     Dosage: 1 MG, 2X/DAY
     Route: 048
     Dates: start: 20081124, end: 20081220
  2. CHANTIX [Suspect]
     Indication: NICOTINE DEPENDENCE

REACTIONS (2)
  - ANGER [None]
  - MOOD SWINGS [None]
